FAERS Safety Report 6241875-3 (Version None)
Quarter: 2009Q2

REPORT INFORMATION
  Report Type: 
  Country: None (occurrence: None)
  Receive Date: 20090623
  Receipt Date: 20090611
  Transmission Date: 20091009
  Serious: Yes (Other)
  Sender: FDA-Public Use
  Company Number: US-PFIZER INC-2009226454

PATIENT
  Sex: Female

DRUGS (9)
  1. LYRICA [Suspect]
     Indication: NEURALGIA
     Dosage: 50 MG, 2X/DAY
     Dates: start: 20090531, end: 20090608
  2. NOVOLOG [Concomitant]
  3. ENALAPRIL [Concomitant]
  4. LEVOTHYROXINE [Concomitant]
  5. FOLIC ACID [Concomitant]
  6. AGGRENOX [Concomitant]
  7. VYTORIN [Concomitant]
  8. NORCO [Concomitant]
  9. ACTONEL [Concomitant]

REACTIONS (6)
  - DECREASED APPETITE [None]
  - DISTURBANCE IN ATTENTION [None]
  - DYSGEUSIA [None]
  - EMOTIONAL DISORDER [None]
  - PSYCHOTIC DISORDER [None]
  - SUICIDAL BEHAVIOUR [None]
